FAERS Safety Report 8791336 (Version 1)
Quarter: 2012Q4

REPORT INFORMATION
  Report Type: Spontaneous
  Country: US (occurrence: None)
  Receive Date: 20120914
  Receipt Date: 20120914
  Transmission Date: 20130627
  Serious: Yes (Other)
  Sender: FDA-Public Use
  Company Number: None

PATIENT
  Age: 24 Year
  Sex: Female
  Weight: 101.61 kg

DRUGS (1)
  1. MIRENA [Suspect]
     Indication: CONTRACEPTION
     Dates: start: 20111121, end: 20120910

REACTIONS (6)
  - Weight increased [None]
  - Ovarian cyst [None]
  - Abdominal pain [None]
  - Anxiety [None]
  - Acne [None]
  - Menorrhagia [None]
